FAERS Safety Report 21066896 (Version 4)
Quarter: 2022Q3

REPORT INFORMATION
  Report Type: Report from Study
  Country: CN (occurrence: CN)
  Receive Date: 20220712
  Receipt Date: 20220803
  Transmission Date: 20221026
  Serious: Yes (Life-Threatening, Hospitalization, Other)
  Sender: FDA-Public Use
  Company Number: CN-BRISTOL-MYERS SQUIBB COMPANY-2022-066287

PATIENT
  Age: 60 Year
  Sex: Male
  Weight: 62 kg

DRUGS (34)
  1. AZACITIDINE [Suspect]
     Active Substance: AZACITIDINE
     Indication: Acute myeloid leukaemia
     Dosage: 1 IN 1 D
     Route: 058
     Dates: start: 20220411
  2. VENETOCLAX [Suspect]
     Active Substance: VENETOCLAX
     Indication: Acute myeloid leukaemia
     Dosage: 400 MG,1 IN 1 D
     Route: 048
     Dates: start: 20220411, end: 20220620
  3. METFORMIN HYDROCHLORIDE [Concomitant]
     Active Substance: METFORMIN HYDROCHLORIDE
     Indication: Diabetes mellitus
     Route: 048
     Dates: start: 20220418
  4. MIGLITOL [Concomitant]
     Active Substance: MIGLITOL
     Indication: Diabetes mellitus
     Dosage: 3 IN 1 D
     Route: 048
  5. MIGLITOL [Concomitant]
     Active Substance: MIGLITOL
     Dosage: 3 IN 1 D
     Route: 048
  6. MIGLITOL [Concomitant]
     Active Substance: MIGLITOL
     Dosage: 3 IN 1 D
     Route: 048
     Dates: start: 20220415
  7. MIGLITOL [Concomitant]
     Active Substance: MIGLITOL
     Dosage: 3 IN 1 D
     Route: 048
  8. CEFIXIME [Concomitant]
     Active Substance: CEFIXIME
     Indication: Infection prophylaxis
     Dosage: 2 IN 1 D
     Route: 048
  9. CEFIXIME [Concomitant]
     Active Substance: CEFIXIME
     Dosage: 2 IN 1 D
     Route: 048
  10. CEFIXIME [Concomitant]
     Active Substance: CEFIXIME
     Dosage: 2 IN 1 D
     Route: 048
     Dates: start: 20220418
  11. CEFIXIME [Concomitant]
     Active Substance: CEFIXIME
     Dosage: 2 IN 1 D
     Route: 048
  12. SULFAMETHOXAZOLE [Concomitant]
     Active Substance: SULFAMETHOXAZOLE
     Indication: Infection prophylaxis
     Dosage: 1 IN 1 D
     Route: 048
     Dates: start: 20220418
  13. SULFAMETHOXAZOLE [Concomitant]
     Active Substance: SULFAMETHOXAZOLE
     Dosage: 1 IN 1 D
     Route: 048
  14. ETHAMSYLATE [Concomitant]
     Active Substance: ETHAMSYLATE
     Indication: Haemostasis
     Dosage: 1 IN 1 D
     Route: 041
     Dates: start: 20220401, end: 20220418
  15. ETHAMSYLATE [Concomitant]
     Active Substance: ETHAMSYLATE
     Dosage: 1 IN 1 D
     Route: 041
  16. ETHAMSYLATE [Concomitant]
     Active Substance: ETHAMSYLATE
     Dosage: 1 IN 1 D
     Route: 041
  17. ETHAMSYLATE [Concomitant]
     Active Substance: ETHAMSYLATE
     Dosage: 1 IN 1 D
     Route: 041
     Dates: start: 20220430
  18. ETHAMSYLATE [Concomitant]
     Active Substance: ETHAMSYLATE
     Dosage: 1 IN 1 D
     Route: 041
  19. CEFOTAXIME SODIUM [Concomitant]
     Active Substance: CEFOTAXIME SODIUM
     Indication: Infection prophylaxis
     Dosage: 1 IN 12 HR
     Route: 041
     Dates: start: 20220430, end: 20220525
  20. CEFOTAXIME SODIUM [Concomitant]
     Active Substance: CEFOTAXIME SODIUM
     Dosage: 1 IN 12 HR
     Route: 041
  21. CEFOTAXIME SODIUM [Concomitant]
     Active Substance: CEFOTAXIME SODIUM
     Dosage: 1 IN 12 HR
     Route: 041
  22. CEFOTAXIME SODIUM [Concomitant]
     Active Substance: CEFOTAXIME SODIUM
     Dosage: 1 IN 12 HR
     Route: 041
  23. HYDROTALCITE [Concomitant]
     Active Substance: HYDROTALCITE
     Dosage: 3 IN 1 D
     Route: 048
  24. HYDROTALCITE [Concomitant]
     Active Substance: HYDROTALCITE
     Indication: Abdominal discomfort
     Dosage: 3 IN 1 D. ORAL INDICATION FOR USE : 1) STOMACH PROTECTION
     Route: 050
  25. HYDROTALCITE [Concomitant]
     Active Substance: HYDROTALCITE
     Dosage: 3 IN 1 D. ORAL INDICATION FOR USE : 1) STOMACH PROTECTION
     Route: 050
  26. HYDROTALCITE [Concomitant]
     Active Substance: HYDROTALCITE
     Dosage: 3 IN 1 D
     Route: 048
     Dates: start: 20220513
  27. HYDROTALCITE [Concomitant]
     Active Substance: HYDROTALCITE
     Dosage: 3 IN 1 D. ORAL INDICATION FOR USE : 1) STOMACH PROTECTION
     Route: 050
  28. TRANSIX [TRANEXAMIC ACID] [Concomitant]
     Indication: Haemostasis
     Dosage: 1 IN 1 D
     Route: 041
     Dates: start: 20220401, end: 20220405
  29. TRANSIX [TRANEXAMIC ACID] [Concomitant]
     Dosage: 1 IN 1 D
     Route: 041
     Dates: start: 20220405, end: 20220418
  30. TRANSIX [TRANEXAMIC ACID] [Concomitant]
     Dosage: 1 IN 1 D
     Route: 041
  31. TRANSIX [TRANEXAMIC ACID] [Concomitant]
     Dosage: 1 IN 1 D
     Route: 041
  32. TRANSIX [TRANEXAMIC ACID] [Concomitant]
     Dosage: 1 IN 1 D
     Route: 041
     Dates: start: 20220430
  33. TRANSIX [TRANEXAMIC ACID] [Concomitant]
     Dosage: 1 IN 1 D
     Route: 041
  34. METFORMIN HYDROCHLORIDE [Concomitant]
     Active Substance: METFORMIN HYDROCHLORIDE
     Indication: Diabetes mellitus
     Route: 048

REACTIONS (5)
  - Myelosuppression [Not Recovered/Not Resolved]
  - Accidental overdose [Not Recovered/Not Resolved]
  - Sepsis [Recovered/Resolved]
  - Pneumonia fungal [Not Recovered/Not Resolved]
  - Pneumonia bacterial [Not Recovered/Not Resolved]

NARRATIVE: CASE EVENT DATE: 20220620
